FAERS Safety Report 18406121 (Version 1)
Quarter: 2020Q4

REPORT INFORMATION
  Report Type: Spontaneous
  Country: US (occurrence: US)
  Receive Date: 20201020
  Receipt Date: 20201020
  Transmission Date: 20210114
  Serious: Yes (Other)
  Sender: FDA-Public Use
  Company Number: US-ENDO PHARMACEUTICALS INC-2020-006681

PATIENT
  Sex: Male

DRUGS (2)
  1. PERCOCET [Suspect]
     Active Substance: ACETAMINOPHEN\OXYCODONE HYDROCHLORIDE
     Indication: BACK PAIN
     Dosage: UNK UNKNOWN, UNKNOWN
     Route: 065
  2. OPIOIDS [Suspect]
     Active Substance: UNSPECIFIED INGREDIENT
     Indication: BACK PAIN
     Dosage: UNK UNKNOWN, UNKNOWN
     Route: 065

REACTIONS (5)
  - Learning disability [Unknown]
  - Atrial fibrillation [Unknown]
  - Overdose [Unknown]
  - Drug dependence [Unknown]
  - Cardiac disorder [Unknown]

NARRATIVE: CASE EVENT DATE: 2005
